FAERS Safety Report 9736648 (Version 1)
Quarter: 2013Q4

REPORT INFORMATION
  Report Type: Spontaneous
  Country: US (occurrence: US)
  Receive Date: 20131206
  Receipt Date: 20131206
  Transmission Date: 20140711
  Serious: Yes (Other)
  Sender: FDA-Public Use
  Company Number: CHPA2013US017924

PATIENT
  Sex: Female

DRUGS (3)
  1. THERAFLU UNKNOWN [Suspect]
     Indication: NASOPHARYNGITIS
     Dosage: UNK, PRN
     Route: 048
  2. THERAFLU NIGHTTIME SEVERE COLD + COUGH [Suspect]
     Indication: NASOPHARYNGITIS
     Dosage: UNK, PRN
  3. THERAFLU DAYTIME SEVERE COLD + COUGH [Suspect]
     Indication: NASOPHARYNGITIS
     Dosage: UNK, PRN

REACTIONS (7)
  - Rotator cuff syndrome [Unknown]
  - Musculoskeletal pain [Unknown]
  - Carpal tunnel syndrome [Unknown]
  - Local swelling [Unknown]
  - Mobility decreased [Unknown]
  - Hypoaesthesia [Unknown]
  - Pain in extremity [Unknown]
